FAERS Safety Report 9081580 (Version 2)
Quarter: 2013Q1

REPORT INFORMATION
  Report Type: Spontaneous
  Country: US (occurrence: US)
  Receive Date: 20130218
  Receipt Date: 20130325
  Transmission Date: 20140127
  Serious: No
  Sender: FDA-Public Use
  Company Number: US-PFIZER INC-2013057722

PATIENT
  Age: 60 Year
  Sex: Female

DRUGS (2)
  1. BOSULIF [Suspect]
     Indication: CHRONIC MYELOID LEUKAEMIA
     Dosage: 500 MG, 1X/DAY
     Dates: start: 20130125
  2. BOSULIF [Suspect]
     Dosage: 100 MG ( 4 TABLETS DAILY) 4X/DAY
     Route: 048
     Dates: start: 20130202

REACTIONS (2)
  - Drug intolerance [Unknown]
  - Diarrhoea [Recovered/Resolved]
